FAERS Safety Report 13279911 (Version 1)
Quarter: 2017Q1

REPORT INFORMATION
  Report Type: Spontaneous
  Country: US (occurrence: US)
  Receive Date: 20170228
  Receipt Date: 20170228
  Transmission Date: 20170428
  Serious: Yes (Other)
  Sender: FDA-Public Use
  Company Number: None

PATIENT
  Age: 3 Year
  Sex: Female
  Weight: 18.45 kg

DRUGS (1)
  1. MIRALAX [Suspect]
     Active Substance: POLYETHYLENE GLYCOL 3350
     Indication: CONSTIPATION
     Route: 048

REACTIONS (9)
  - Sleep terror [None]
  - Hyporesponsive to stimuli [None]
  - Irritability [None]
  - Neuropsychiatric symptoms [None]
  - Mood swings [None]
  - Seizure like phenomena [None]
  - Anger [None]
  - Screaming [None]
  - Blepharospasm [None]
